FAERS Safety Report 24898429 (Version 1)
Quarter: 2025Q1

REPORT INFORMATION
  Report Type: Spontaneous
  Country: TR (occurrence: TR)
  Receive Date: 20250129
  Receipt Date: 20250129
  Transmission Date: 20250408
  Serious: Yes (Other)
  Sender: STRIDES
  Company Number: TR-STRIDES ARCOLAB LIMITED-2025SP001357

PATIENT
  Age: 68 Year
  Sex: Female

DRUGS (1)
  1. PREDNISOLONE [Suspect]
     Active Substance: PREDNISOLONE
     Indication: Eosinophilia
     Route: 065
     Dates: start: 202209

REACTIONS (3)
  - Eosinophilia [Unknown]
  - Duodenitis [Unknown]
  - Strongyloidiasis [Recovered/Resolved]

NARRATIVE: CASE EVENT DATE: 20220901
